FAERS Safety Report 5056638-4 (Version None)
Quarter: 2006Q2

REPORT INFORMATION
  Report Type: 
  Country: None (occurrence: None)
  Receive Date: 20060616
  Receipt Date: 20060427
  Transmission Date: 20061013
  Serious: Yes (Disabling)
  Sender: FDA-Public Use
  Company Number: 2006US000243

PATIENT
  Age: 82 Year
  Sex: Male

DRUGS (8)
  1. VESICARE [Suspect]
     Indication: HYPERTONIC BLADDER
     Dosage: 5 MG, UID/QD, ORAL
     Route: 048
     Dates: end: 20060128
  2. HYTRIN [Concomitant]
  3. ACIPHEX [Concomitant]
  4. MEVACOR [Concomitant]
  5. MULTIVITAMIN [Concomitant]
  6. ASPIRIN [Concomitant]
  7. ALLEGRA [Concomitant]
  8. FLONASE [Concomitant]

REACTIONS (1)
  - VISION BLURRED [None]
